FAERS Safety Report 8584143-7 (Version None)
Quarter: 2012Q3

REPORT INFORMATION
  Report Type: 
  Country: None (occurrence: None)
  Receive Date: 20120810
  Receipt Date: 20120801
  Transmission Date: 20120928
  Serious: No
  Sender: FDA-Public Use
  Company Number: US-009507513-1208USA001214

PATIENT

DRUGS (4)
  1. REBETOL [Suspect]
     Indication: HEPATITIS C
     Dosage: UNK
     Dates: start: 20051217, end: 20061101
  2. REBETOL [Suspect]
     Dosage: UNK
     Dates: start: 20120401, end: 20120501
  3. PEG-INTRON [Suspect]
     Indication: HEPATITIS C
     Dosage: UNK
     Route: 058
     Dates: start: 20051217, end: 20061101
  4. PEG-INTRON [Suspect]
     Dosage: UNK
     Route: 058
     Dates: start: 20120401, end: 20120501

REACTIONS (1)
  - NO THERAPEUTIC RESPONSE [None]
